FAERS Safety Report 9893420 (Version 2)
Quarter: 2014Q1

REPORT INFORMATION
  Report Type: Spontaneous
  Country: RO (occurrence: RO)
  Receive Date: 20140213
  Receipt Date: 20140320
  Transmission Date: 20141002
  Serious: Yes (Death, Hospitalization)
  Sender: FDA-Public Use
  Company Number: RO-AMGEN-ROUSP2014009344

PATIENT
  Age: 67 Year
  Sex: Female

DRUGS (7)
  1. NEULASTA [Suspect]
     Indication: PROPHYLAXIS
     Dosage: 6 MG, 1 DAY AFTER R-CHOP ADMINISTRATION (5TH CYCLE)
     Route: 058
  2. DIAPREL [Concomitant]
     Indication: DIABETES MELLITUS
     Dosage: 1/2 TB/DAY
     Route: 048
  3. RITUXIMAB [Concomitant]
     Indication: NON-HODGKIN^S LYMPHOMA STAGE III
     Dosage: 5TH CYCLE
     Dates: start: 20140120, end: 20140120
  4. CYCLOPHOSPHAMIDE [Concomitant]
     Indication: NON-HODGKIN^S LYMPHOMA STAGE III
     Dosage: 5TH CYCLE
     Dates: start: 20140120, end: 20140120
  5. DOXORUBICIN [Concomitant]
     Indication: NON-HODGKIN^S LYMPHOMA STAGE III
     Dosage: 5TH CYCLE
     Dates: start: 20140120, end: 20140120
  6. ONCOVIN [Concomitant]
     Indication: NON-HODGKIN^S LYMPHOMA STAGE III
     Dosage: 5TH CYCLE
     Dates: start: 20140120, end: 20140120
  7. PREDNISOLONE [Concomitant]
     Indication: NON-HODGKIN^S LYMPHOMA STAGE III
     Dosage: 5TH CYCLE
     Dates: start: 20140120, end: 20140120

REACTIONS (5)
  - Death [Fatal]
  - Meningitis [Unknown]
  - Bone marrow failure [Recovered/Resolved]
  - Septic shock [Not Recovered/Not Resolved]
  - Coma [Not Recovered/Not Resolved]
